FAERS Safety Report 4982778-1 (Version None)
Quarter: 2006Q2

REPORT INFORMATION
  Report Type: 
  Country: None (occurrence: None)
  Receive Date: 20060420
  Receipt Date: 20060406
  Transmission Date: 20061013
  Serious: Yes (Other)
  Sender: FDA-Public Use
  Company Number: 223922

PATIENT
  Sex: Female

DRUGS (2)
  1. HERCEPTIN [Suspect]
  2. TAXOL [Concomitant]

REACTIONS (1)
  - ERYTHROMELALGIA [None]
